FAERS Safety Report 7788571-9 (Version None)
Quarter: 2011Q3

REPORT INFORMATION
  Report Type: 
  Country: None (occurrence: None)
  Receive Date: 20110928
  Receipt Date: 20110912
  Transmission Date: 20111222
  Serious: Yes (Life-Threatening, Hospitalization)
  Sender: FDA-Public Use
  Company Number: GGEL20110901349

PATIENT
  Age: 51 Year
  Sex: Male

DRUGS (2)
  1. METFORMIN HCL [Suspect]
     Indication: PAIN
     Dosage: 1 IN 6 HR
  2. OXYCODONE-ACETAMINOPHEN (OXYCODONE, ACETAMINOPHEN) (OXYCODONE) [Concomitant]

REACTIONS (7)
  - UNRESPONSIVE TO STIMULI [None]
  - BLOOD GLUCOSE DECREASED [None]
  - BLOOD LACTIC ACID INCREASED [None]
  - DRUG ADMINISTRATION ERROR [None]
  - BLOOD PRESSURE DECREASED [None]
  - ACIDOSIS [None]
  - ACCIDENTAL OVERDOSE [None]
